FAERS Safety Report 10279310 (Version 1)
Quarter: 2014Q3

REPORT INFORMATION
  Report Type: Spontaneous
  Country: BR (occurrence: BR)
  Receive Date: 20140707
  Receipt Date: 20140707
  Transmission Date: 20150326
  Serious: Yes (Other)
  Sender: FDA-Public Use
  Company Number: BR-ACCORD-024583

PATIENT
  Age: 50 Year
  Sex: Female
  Weight: 84 kg

DRUGS (5)
  1. DEXCHLORPHENIRAMINE [Concomitant]
     Active Substance: DEXCHLORPHENIRAMINE
     Indication: PROPHYLAXIS
     Route: 042
     Dates: start: 20140507, end: 20140507
  2. PACLITAXEL ACCORD [Suspect]
     Active Substance: PACLITAXEL
     Indication: BREAST CANCER
     Dosage: 6 MG/ML - VIAL 16,7 ML?FORESEEN 12 SESSIONS OF WEEKLY PACLITAXEL
     Route: 042
     Dates: start: 20140318
  3. ONDANSETRON [Concomitant]
     Active Substance: ONDANSETRON
     Indication: PROPHYLAXIS
     Route: 042
     Dates: start: 20140507, end: 20140507
  4. RANITIDINE [Concomitant]
     Active Substance: RANITIDINE\RANITIDINE HYDROCHLORIDE
     Indication: PROPHYLAXIS
     Route: 042
     Dates: start: 20140428, end: 20140428
  5. DEXAMETHASONE. [Concomitant]
     Active Substance: DEXAMETHASONE
     Indication: PROPHYLAXIS
     Route: 042
     Dates: start: 20140507, end: 20140507

REACTIONS (5)
  - Pyrexia [Unknown]
  - Rhinitis [Unknown]
  - Infusion site pain [Recovered/Resolved]
  - Paraesthesia [Unknown]
  - Asthenia [Unknown]

NARRATIVE: CASE EVENT DATE: 20140507
